FAERS Safety Report 8926796 (Version 1)
Quarter: 2012Q4

REPORT INFORMATION
  Report Type: 
  Country: GB (occurrence: GB)
  Receive Date: 20121127
  Receipt Date: 20121127
  Transmission Date: 20130627
  Serious: Yes (Death, Hospitalization)
  Sender: FDA-Public Use
  Company Number: GB-ELI_LILLY_AND_COMPANY-GB201112002549

PATIENT
  Sex: Male
  Weight: 101 kg

DRUGS (4)
  1. ZYPREXA [Suspect]
     Indication: SCHIZOPHRENIA
  2. OLANZAPINE [Suspect]
     Indication: SCHIZOPHRENIA
     Dosage: 25mg, Unk
     Route: 048
     Dates: end: 20111128
  3. OLANZAPINE [Suspect]
     Dosage: 20mg, Unk
     Route: 048
     Dates: start: 20111130
  4. MORPHINE [Concomitant]

REACTIONS (6)
  - Multi-organ failure [Fatal]
  - Megacolon [Not Recovered/Not Resolved]
  - Systemic candida [Not Recovered/Not Resolved]
  - Confusional state [Not Recovered/Not Resolved]
  - Incorrect drug administration duration [Unknown]
  - Off label use [Unknown]
